FAERS Safety Report 15111520 (Version 1)
Quarter: 2018Q3

REPORT INFORMATION
  Report Type: Spontaneous
  Country: BE (occurrence: BE)
  Receive Date: 20180705
  Receipt Date: 20180705
  Transmission Date: 20181010
  Serious: Yes (Other)
  Sender: FDA-Public Use
  Company Number: BE-PFIZER INC-2018267002

PATIENT
  Age: 74 Year
  Sex: Female
  Weight: 73 kg

DRUGS (2)
  1. AROMASIN [Suspect]
     Active Substance: EXEMESTANE
  2. NOLVADEX /00388701/ [Suspect]
     Active Substance: TAMOXIFEN CITRATE
     Dates: start: 20130725

REACTIONS (15)
  - Deep vein thrombosis [Unknown]
  - Bone pain [Unknown]
  - Tenosynovitis stenosans [Unknown]
  - Arthralgia [Unknown]
  - Pruritus [Unknown]
  - Nausea [Unknown]
  - Decreased appetite [Unknown]
  - Joint swelling [Unknown]
  - Muscle spasms [Unknown]
  - Personality change [Unknown]
  - Agitation [Unknown]
  - Fatigue [Unknown]
  - Insomnia [Unknown]
  - Hypertension [Unknown]
  - Tendon rupture [Unknown]

NARRATIVE: CASE EVENT DATE: 2013
